FAERS Safety Report 22055576 (Version 1)
Quarter: 2023Q1

REPORT INFORMATION
  Report Type: Spontaneous
  Country: US (occurrence: None)
  Receive Date: 20230302
  Receipt Date: 20230302
  Transmission Date: 20230418
  Serious: Yes (Hospitalization)
  Sender: FDA-Public Use
  Company Number: None

PATIENT
  Sex: Female
  Weight: 96.62 kg

DRUGS (8)
  1. CAPECITABINE [Suspect]
     Active Substance: CAPECITABINE
     Indication: Breast cancer female
     Dosage: FREQUENCY : TWICE A DAY;?
     Route: 048
  2. ELIQUIS [Concomitant]
  3. KLOR-CON [Concomitant]
  4. LYRICA [Concomitant]
  5. METHADONE [Concomitant]
  6. MORPHINE SULFATE SDZ [Concomitant]
  7. SENNA [Concomitant]
  8. SYNTHROID [Concomitant]

REACTIONS (1)
  - Thrombosis [None]
